FAERS Safety Report 4427159-4 (Version None)
Quarter: 2004Q3

REPORT INFORMATION
  Report Type: 
  Country: None (occurrence: None)
  Receive Date: 20040726
  Receipt Date: 20040526
  Transmission Date: 20050211
  Serious: No
  Sender: FDA-Public Use
  Company Number: USA040465980

PATIENT
  Age: 75 Year
  Sex: Female

DRUGS (4)
  1. FORTEO [Suspect]
     Indication: OSTEOPOROSIS
     Dates: start: 20040423
  2. TUMS (CALCIUM CARBONATE) [Concomitant]
  3. VITAMIN D [Concomitant]
  4. BEXTRA [Concomitant]

REACTIONS (6)
  - BONE DENSITY DECREASED [None]
  - CONTUSION [None]
  - HEADACHE [None]
  - INJECTION SITE HAEMORRHAGE [None]
  - PALPITATIONS [None]
  - TINNITUS [None]
